FAERS Safety Report 25519147 (Version 3)
Quarter: 2025Q3

REPORT INFORMATION
  Report Type: Spontaneous
  Country: JP (occurrence: JP)
  Receive Date: 20250704
  Receipt Date: 20250717
  Transmission Date: 20251021
  Serious: No
  Sender: IDORSIA PHARMACEUTICALS
  Company Number: JP-IDORSIA-010983-2025-JP

PATIENT
  Age: 39 Year
  Sex: Male
  Weight: 83 kg

DRUGS (9)
  1. QUVIVIQ [Suspect]
     Active Substance: DARIDOREXANT
     Indication: Insomnia
     Dosage: 50 MG, QD
     Route: 048
     Dates: start: 20250603, end: 20250604
  2. QUVIVIQ [Suspect]
     Active Substance: DARIDOREXANT
     Indication: Delirium
  3. SEROQUEL [Concomitant]
     Active Substance: QUETIAPINE FUMARATE
  4. ZYPREXA [Concomitant]
     Active Substance: OLANZAPINE
  5. TRINTELLIX [Concomitant]
     Active Substance: VORTIOXETINE HYDROBROMIDE
  6. RIVOTRIL [Concomitant]
     Active Substance: CLONAZEPAM
  7. BROMAZEPAM [Concomitant]
     Active Substance: BROMAZEPAM
  8. SOLANAX [Concomitant]
     Active Substance: ALPRAZOLAM
  9. AKINETON [Concomitant]
     Active Substance: BIPERIDEN HYDROCHLORIDE

REACTIONS (1)
  - Parasomnia [Recovered/Resolved]

NARRATIVE: CASE EVENT DATE: 20250603
